FAERS Safety Report 5373655-5 (Version None)
Quarter: 2007Q2

REPORT INFORMATION
  Report Type: 
  Country: None (occurrence: None)
  Receive Date: 20070628
  Receipt Date: 20070625
  Transmission Date: 20071010
  Serious: Yes (Death)
  Sender: FDA-Public Use
  Company Number: ES-GILEAD-2007-0012526

PATIENT
  Age: 47 Year
  Sex: Male
  Weight: 80 kg

DRUGS (2)
  1. TRUVADA [Suspect]
     Route: 048
     Dates: start: 20051221, end: 20051224
  2. SUSTIVA [Suspect]
     Route: 048
     Dates: start: 20051221, end: 20051224

REACTIONS (2)
  - HEPATITIS [None]
  - RENAL IMPAIRMENT [None]
